FAERS Safety Report 8228995 (Version 2)
Quarter: 2012Q4

REPORT INFORMATION
  Report Type: 
  Country: US (occurrence: US)
  Receive Date: 20111104
  Receipt Date: 20121102
  Transmission Date: 20130627
  Serious: No
  Sender: FDA-Public Use
  Company Number: US-GLAXOSMITHKLINE-A0940515A

PATIENT
  Age: 70 Year
  Sex: Female

DRUGS (2)
  1. HORIZANT [Suspect]
     Indication: RESTLESS LEGS SYNDROME
     Dosage: 600MG Per day
     Route: 048
     Dates: start: 20110809
  2. TOPROL [Concomitant]

REACTIONS (2)
  - Ill-defined disorder [Unknown]
  - Insomnia [Unknown]
